FAERS Safety Report 7437238-5 (Version None)
Quarter: 2011Q2

REPORT INFORMATION
  Report Type: 
  Country: None (occurrence: None)
  Receive Date: 20110426
  Receipt Date: 20110418
  Transmission Date: 20111010
  Serious: Yes (Other)
  Sender: FDA-Public Use
  Company Number: JP-B.I. PHARMACEUTICALS,INC./RIDGEFIELD-2011-BP-11545YA

PATIENT
  Age: 84 Year
  Sex: Male

DRUGS (2)
  1. TAMSULOSIN HCL [Suspect]
     Indication: BENIGN PROSTATIC HYPERPLASIA
     Dosage: 0.2 MG
     Route: 048
     Dates: start: 20110321, end: 20110414
  2. BERIZYM (LIPASE, PANCREATIN) [Concomitant]
     Route: 048
     Dates: start: 20061201

REACTIONS (1)
  - ERYTHEMA MULTIFORME [None]
